FAERS Safety Report 17912738 (Version 2)
Quarter: 2020Q3

REPORT INFORMATION
  Report Type: Spontaneous
  Country: IT (occurrence: IT)
  Receive Date: 20200618
  Receipt Date: 20200703
  Transmission Date: 20201103
  Serious: Yes (Hospitalization, Other)
  Sender: FDA-Public Use
  Company Number: IT-SHIRE-IT202019464

PATIENT

DRUGS (6)
  1. 476 (MESALAZINE/MESALAMINE) [Suspect]
     Active Substance: MESALAMINE
     Dosage: 2400 MILLIGRAM, 1X/DAY:QD, 800 MILLIGRAM,THREE TIMES DAILY
     Route: 065
  2. METHYLPREDNISOLONE. [Concomitant]
     Active Substance: METHYLPREDNISOLONE
     Indication: HENOCH-SCHONLEIN PURPURA
     Dosage: UNK
     Route: 042
  3. 476 (MESALAZINE/MESALAMINE) [Suspect]
     Active Substance: MESALAMINE
     Indication: COLITIS
     Dosage: 800 MILLIGRAM,THREE TIMES DAILY
     Route: 065
  4. PREDNISONE. [Concomitant]
     Active Substance: PREDNISONE
     Indication: COLITIS
     Dosage: 25 MILLIGRAM, QD
     Route: 065
  5. METRONIDAZOLE. [Concomitant]
     Active Substance: METRONIDAZOLE
     Indication: HENOCH-SCHONLEIN PURPURA
     Dosage: UNK
     Route: 065
  6. CIPROFLOXACIN. [Concomitant]
     Active Substance: CIPROFLOXACIN
     Indication: HENOCH-SCHONLEIN PURPURA
     Dosage: UNK
     Route: 065

REACTIONS (1)
  - Erythema multiforme [Recovered/Resolved]
